FAERS Safety Report 9220002 (Version 1)
Quarter: 2013Q2

REPORT INFORMATION
  Report Type: Spontaneous
  Country: NO (occurrence: None)
  Receive Date: 20130405
  Receipt Date: 20130405
  Transmission Date: 20140414
  Serious: Yes (Other)
  Sender: FDA-Public Use
  Company Number: ABR_00886_2013

PATIENT
  Sex: Male

DRUGS (5)
  1. ERYTHROMYCIN (ERYTHROMYCIN) [Suspect]
     Indication: PRODUCT USED FOR UNKNOWN INDICATION
     Route: 064
  2. CEFTOAXIM [Concomitant]
  3. METRONIDAZOLE [Concomitant]
  4. CLINDAMYCIN [Concomitant]
  5. BETAMETHASONE [Concomitant]

REACTIONS (4)
  - Infection [None]
  - Uterine tenderness [None]
  - Caesarean section [None]
  - Exposure during pregnancy [None]
